FAERS Safety Report 5731416-9 (Version None)
Quarter: 2008Q2

REPORT INFORMATION
  Report Type: 
  Country: None (occurrence: None)
  Receive Date: 20080506
  Receipt Date: 20080506
  Transmission Date: 20081010
  Serious: Yes (Other)
  Sender: FDA-Public Use
  Company Number: None

PATIENT
  Age: 61 Year
  Sex: Female
  Weight: 87.5442 kg

DRUGS (7)
  1. ZOLOFT [Suspect]
     Indication: VERTIGO
     Dosage: 100MG PO QD
     Route: 048
  2. NEXIUM [Concomitant]
  3. LIPITOR [Concomitant]
  4. CALCIUM [Concomitant]
  5. MAGNESIUM [Concomitant]
  6. FISH OIL [Concomitant]
  7. CO-Q-10 [Concomitant]

REACTIONS (2)
  - NIGHTMARE [None]
  - VERTIGO [None]
